FAERS Safety Report 5148941-4 (Version None)
Quarter: 2006Q4

REPORT INFORMATION
  Report Type: 
  Country: None (occurrence: None)
  Receive Date: 20061113
  Receipt Date: 20060927
  Transmission Date: 20070319
  Serious: Yes (Death, Other)
  Sender: FDA-Public Use
  Company Number: JP-BRISTOL-MYERS SQUIBB COMPANY-13525340

PATIENT
  Age: 56 Year
  Sex: Female

DRUGS (7)
  1. BRIPLATIN [Suspect]
     Indication: OVARIAN CANCER
     Route: 041
  2. TAXOL [Suspect]
     Indication: OVARIAN CANCER
     Route: 041
  3. VEPESID [Suspect]
     Indication: OVARIAN CANCER
     Route: 048
     Dates: start: 20020301, end: 20040101
  4. PARAPLATIN [Suspect]
     Indication: OVARIAN CANCER
     Route: 041
  5. ENDOXAN [Suspect]
     Indication: OVARIAN CANCER
     Route: 041
  6. TAXOTERE [Suspect]
     Indication: OVARIAN CANCER
     Route: 041
  7. FARMORUBICIN [Suspect]
     Indication: OVARIAN CANCER
     Route: 041

REACTIONS (1)
  - ACUTE MYELOID LEUKAEMIA [None]
